FAERS Safety Report 5688195-3 (Version None)
Quarter: 2008Q1

REPORT INFORMATION
  Report Type: 
  Country: None (occurrence: None)
  Receive Date: 20080327
  Receipt Date: 20080318
  Transmission Date: 20080703
  Serious: Yes (Hospitalization)
  Sender: FDA-Public Use
  Company Number: DSJ-2008-02656

PATIENT
  Age: 74 Year
  Sex: Male

DRUGS (4)
  1. OLMESARTAN MEDOXOMIL [Suspect]
     Indication: HYPERTENSION
     Dosage: 20 MG (1 IN 1 D), PER ORAL
     Route: 048
     Dates: start: 20060222
  2. TOLTERODINE TARTRATE [Suspect]
     Dosage: 2 MG (1 IN 1 D), PER ORAL
     Route: 048
     Dates: start: 20080101, end: 20080226
  3. AMLODIPINE BESYLATE [Suspect]
     Indication: HYPERTENSION
     Dosage: 5 MG (1 IN 1 D), PER ORAL
     Route: 048
     Dates: start: 20050112
  4. WARFARIN SODIUM [Suspect]
     Indication: ANTICOAGULANT THERAPY
     Dosage: 3 MG, PER ORAL
     Route: 048
     Dates: start: 20040904

REACTIONS (2)
  - CARDIAC FAILURE [None]
  - TACHYCARDIA [None]
